FAERS Safety Report 23339355 (Version 6)
Quarter: 2025Q3

REPORT INFORMATION
  Report Type: Spontaneous
  Country: EU (occurrence: EU)
  Receive Date: 20231226
  Receipt Date: 20250903
  Transmission Date: 20251020
  Serious: Yes (Other)
  Sender: PFIZER
  Company Number: EU-ROCHE-3434940

PATIENT
  Age: 7 Year
  Sex: Female
  Weight: 24.1 kg

DRUGS (37)
  1. CARBOPLATIN [Suspect]
     Active Substance: CARBOPLATIN
     Indication: B-cell lymphoma
     Dosage: 565 MG, 1X/DAY
     Route: 042
     Dates: start: 20230811
  2. CYTARABINE [Suspect]
     Active Substance: CYTARABINE
     Indication: B-cell lymphoma
     Route: 037
     Dates: start: 20230811
  3. METHOTREXATE [Suspect]
     Active Substance: METHOTREXATE
     Indication: B-cell lymphoma
     Route: 037
     Dates: start: 20230811
  4. HYDROCORTISONE [Suspect]
     Active Substance: HYDROCORTISONE
     Indication: B-cell lymphoma
     Dosage: 7.5 MG, 1X/DAY
     Route: 048
     Dates: start: 20230405
  5. HYDROCORTISONE [Suspect]
     Active Substance: HYDROCORTISONE
     Dosage: 12 MG, 1X/DAY (START DATE OF MOST RECENT DOSE PRIOR TO SAE ONSET: 11AUG2023 )
     Route: 037
     Dates: start: 20230811
  6. GLOFITAMAB [Suspect]
     Active Substance: GLOFITAMAB
     Indication: B-cell lymphoma
     Route: 042
     Dates: start: 20230818
  7. GLOFITAMAB [Suspect]
     Active Substance: GLOFITAMAB
     Route: 042
     Dates: start: 20230828
  8. OBINUTUZUMAB [Suspect]
     Active Substance: OBINUTUZUMAB
     Indication: B-cell lymphoma
     Route: 042
     Dates: start: 20230809
  9. OBINUTUZUMAB [Suspect]
     Active Substance: OBINUTUZUMAB
     Route: 042
     Dates: start: 20230810
  10. OBINUTUZUMAB [Suspect]
     Active Substance: OBINUTUZUMAB
     Route: 042
     Dates: start: 20230829
  11. ETOPOSIDE [Suspect]
     Active Substance: ETOPOSIDE
     Indication: B-cell lymphoma
     Route: 042
     Dates: start: 20230811
  12. MESNA [Suspect]
     Active Substance: MESNA
     Indication: B-cell lymphoma
     Route: 042
     Dates: start: 20230811
  13. MESNA [Suspect]
     Active Substance: MESNA
     Route: 042
     Dates: start: 20230811
  14. LENOGRASTIM [Suspect]
     Active Substance: LENOGRASTIM
     Indication: B-cell lymphoma
     Route: 042
     Dates: start: 20230814
  15. LENOGRASTIM [Suspect]
     Active Substance: LENOGRASTIM
     Route: 042
     Dates: start: 20230815
  16. IFOSFAMIDE [Suspect]
     Active Substance: IFOSFAMIDE
     Indication: B-cell lymphoma
     Route: 042
     Dates: start: 20230811
  17. HYDROCORTISONE [Concomitant]
     Active Substance: HYDROCORTISONE
     Dosage: 5 MG, 1X/DAY
     Route: 048
  18. OXYGEN [Concomitant]
     Active Substance: OXYGEN
  19. BACTRIM [Concomitant]
     Active Substance: SULFAMETHOXAZOLE\TRIMETHOPRIM
     Indication: Prophylaxis
     Dosage: 600 MG, 1X/DAY (3 TIMES/WEEK )
     Route: 048
     Dates: start: 202302, end: 20230907
  20. BACTRIM [Concomitant]
     Active Substance: SULFAMETHOXAZOLE\TRIMETHOPRIM
     Dosage: UNK UNK, WEEKLY
     Route: 048
     Dates: start: 20230907
  21. ACETAMINOPHEN [Concomitant]
     Active Substance: ACETAMINOPHEN
     Dosage: 350 MG, DAILY
     Route: 048
     Dates: start: 20230809, end: 20230810
  22. ACETAMINOPHEN [Concomitant]
     Active Substance: ACETAMINOPHEN
     Dosage: 350 MG, DAILY
     Route: 048
     Dates: start: 20230818, end: 20230818
  23. ACETAMINOPHEN [Concomitant]
     Active Substance: ACETAMINOPHEN
     Dosage: 350 MG, DAILY
     Route: 048
     Dates: start: 20230828, end: 20230828
  24. ATARAX [Concomitant]
     Active Substance: HYDROXYZINE HYDROCHLORIDE
     Indication: Anxiety
     Dosage: 20 MG, DAILY
     Route: 048
     Dates: start: 20230812, end: 20230818
  25. INTRATECT [Concomitant]
     Active Substance: HUMAN IMMUNOGLOBULIN G
     Dosage: 10 G, DAILY
     Route: 042
     Dates: start: 20230822, end: 20230822
  26. DEXAMETHASONE [Concomitant]
     Active Substance: DEXAMETHASONE
     Dosage: 12 MG, DAILY
     Route: 042
     Dates: start: 20230809, end: 20230810
  27. DEXAMETHASONE [Concomitant]
     Active Substance: DEXAMETHASONE
     Dosage: 12 MG, DAILY
     Route: 042
     Dates: start: 20230818, end: 20230818
  28. DEXAMETHASONE [Concomitant]
     Active Substance: DEXAMETHASONE
     Dosage: 10 MG, DAILY
     Route: 042
     Dates: start: 20230828, end: 20230828
  29. POLARAMINE [Concomitant]
     Active Substance: DEXCHLORPHENIRAMINE MALEATE
     Dosage: 5 MG, DAILY
     Route: 042
     Dates: start: 20230809, end: 20230810
  30. POLARAMINE [Concomitant]
     Active Substance: DEXCHLORPHENIRAMINE MALEATE
     Dosage: 5 MG, DAILY
     Route: 042
     Dates: start: 20230818, end: 20230818
  31. POLARAMINE [Concomitant]
     Active Substance: DEXCHLORPHENIRAMINE MALEATE
     Dosage: 5 MG, DAILY
     Route: 042
     Dates: start: 20230828, end: 20230828
  32. RASBURICASE [Concomitant]
     Active Substance: RASBURICASE
     Dosage: 4.7 MG, DAILY
     Route: 042
     Dates: start: 20230809, end: 20230810
  33. AMOXICILLIN [Concomitant]
     Active Substance: AMOXICILLIN
     Indication: Gingivitis
     Dosage: 750 MG, 3X/DAY
     Route: 048
     Dates: start: 20230822, end: 20230828
  34. DOLIPRANE [Concomitant]
     Active Substance: ACETAMINOPHEN
     Indication: Pain
     Route: 048
     Dates: start: 20230809, end: 20230828
  35. DOLIPRANE [Concomitant]
     Active Substance: ACETAMINOPHEN
     Dosage: 300 MG, 1X/DAY
     Route: 048
     Dates: start: 20230810, end: 20230813
  36. HALDOL [Concomitant]
     Active Substance: HALOPERIDOL
     Indication: Vomiting
     Dosage: 10 DROP, 1X/DAY
     Route: 048
     Dates: start: 20230811, end: 20230811
  37. ALOXI [Concomitant]
     Active Substance: PALONOSETRON HYDROCHLORIDE
     Indication: Vomiting
     Dosage: 236 ?G, 1X/DAY
     Route: 042
     Dates: start: 20230815

REACTIONS (2)
  - Cytokine release syndrome [Recovered/Resolved]
  - Off label use [Unknown]

NARRATIVE: CASE EVENT DATE: 20230811
